FAERS Safety Report 12420059 (Version 1)
Quarter: 2016Q2

REPORT INFORMATION
  Report Type: Spontaneous
  Country: US (occurrence: US)
  Receive Date: 20160531
  Receipt Date: 20160531
  Transmission Date: 20160815
  Serious: Yes (Hospitalization)
  Sender: FDA-Public Use
  Company Number: US-PFIZER INC-2016280391

PATIENT
  Age: 51 Year
  Sex: Male
  Weight: 86.18 kg

DRUGS (1)
  1. REVATIO [Suspect]
     Active Substance: SILDENAFIL CITRATE
     Indication: HEART VALVE REPLACEMENT
     Dosage: 20 MG, 3X/DAY
     Dates: start: 2010

REACTIONS (2)
  - Bronchitis [Unknown]
  - Product use issue [Unknown]

NARRATIVE: CASE EVENT DATE: 2010
